FAERS Safety Report 9598613 (Version 2)
Quarter: 2013Q4

REPORT INFORMATION
  Report Type: Spontaneous
  Country: US (occurrence: US)
  Receive Date: 20131004
  Receipt Date: 20131004
  Transmission Date: 20140711
  Serious: No
  Sender: FDA-Public Use
  Company Number: US-AMGEN-USASP2013023893

PATIENT
  Age: 45 Year
  Sex: Male
  Weight: 72 kg

DRUGS (12)
  1. ENBREL [Suspect]
     Indication: RHEUMATOID ARTHRITIS
     Dosage: 50 MG, QWK
     Route: 058
     Dates: start: 20130329
  2. MEDROL                             /00049601/ [Concomitant]
     Dosage: 4 MG, UNK
  3. METHOTREXATE [Concomitant]
     Dosage: 2.5 MG, UNK
  4. REGLAN                             /00041901/ [Concomitant]
     Dosage: 5 MG, UNK
  5. LISINOPRIL [Concomitant]
     Dosage: 2.5 MG, UNK
  6. SIMVASTATIN [Concomitant]
     Dosage: 5 MG, UNK
  7. LEVEMIR [Concomitant]
     Dosage: UNK
  8. PERCOCET                           /00446701/ [Concomitant]
     Dosage: 2.5-325,
  9. FOLIC ACID [Concomitant]
     Dosage: UNK
  10. MULTIVITAMINS, PLAIN [Concomitant]
     Dosage: UNK
  11. VITAMIN D                          /00107901/ [Concomitant]
     Dosage: 2000 UNIT, UNK
  12. GABAPENTIN [Concomitant]
     Dosage: 100 MG, UNK

REACTIONS (3)
  - Rhinorrhoea [Not Recovered/Not Resolved]
  - Nausea [Not Recovered/Not Resolved]
  - Nasopharyngitis [Unknown]
